FAERS Safety Report 12840035 (Version 1)
Quarter: 2016Q4

REPORT INFORMATION
  Report Type: Spontaneous
  Country: US (occurrence: US)
  Receive Date: 20161012
  Receipt Date: 20161012
  Transmission Date: 20170207
  Serious: Yes (Death, Other)
  Sender: FDA-Public Use
  Company Number: US-PFIZER INC-2016464222

PATIENT
  Age: 22 Year

DRUGS (2)
  1. DEXTROMETHORPHAN HBR [Suspect]
     Active Substance: DEXTROMETHORPHAN HYDROBROMIDE
     Dosage: 600 MG, UNK
  2. SELEGILINE [Suspect]
     Active Substance: SELEGILINE
     Indication: DEPRESSION
     Dosage: UNK

REACTIONS (3)
  - Overdose [Fatal]
  - Serotonin syndrome [Fatal]
  - Toxicity to various agents [Fatal]
